FAERS Safety Report 5458645-6 (Version None)
Quarter: 2007Q3

REPORT INFORMATION
  Report Type: 
  Country: None (occurrence: None)
  Receive Date: 20070919
  Receipt Date: 20070420
  Transmission Date: 20080115
  Serious: No
  Sender: FDA-Public Use
  Company Number: US-ASTRAZENECA-2007UW07805

PATIENT
  Age: 55 Year
  Sex: Female
  Weight: 88.5 kg

DRUGS (2)
  1. SEROQUEL [Suspect]
     Indication: DEPRESSION
     Route: 048
     Dates: start: 20070418, end: 20070418
  2. SEROQUEL [Suspect]
     Indication: AFFECTIVE DISORDER
     Route: 048
     Dates: start: 20070418, end: 20070418

REACTIONS (3)
  - DIPLOPIA [None]
  - IMPAIRED DRIVING ABILITY [None]
  - SOMNOLENCE [None]
